FAERS Safety Report 15819814 (Version 1)
Quarter: 2019Q1

REPORT INFORMATION
  Report Type: Report from Study
  Country: US (occurrence: US)
  Receive Date: 20190114
  Receipt Date: 20190114
  Transmission Date: 20190417
  Serious: Yes (Death)
  Sender: FDA-Public Use
  Company Number: US-TAIHO ONCOLOGY  INC-EU-2019-00085

PATIENT
  Sex: Female

DRUGS (7)
  1. LONSURF [Suspect]
     Active Substance: TIPIRACIL HYDROCHLORIDE\TRIFLURIDINE
     Indication: COLON CANCER
     Dosage: CURRENT CYCLE UNKNOWN
     Route: 048
     Dates: start: 20180905
  2. PANTOPRAZOLE [Concomitant]
     Active Substance: PANTOPRAZOLE
     Dosage: NI
  3. FENTANYL. [Concomitant]
     Active Substance: FENTANYL
     Dosage: NI
  4. GENERLAC [Concomitant]
     Active Substance: LACTULOSE
     Dosage: NI
  5. FUROSEMIDE. [Concomitant]
     Active Substance: FUROSEMIDE
     Dosage: NI
  6. OXYCODONE [Concomitant]
     Active Substance: OXYCODONE
     Dosage: NI
  7. FEROSUL [Concomitant]
     Dosage: NI

REACTIONS (1)
  - Death [Fatal]
